FAERS Safety Report 13016915 (Version 1)
Quarter: 2016Q4

REPORT INFORMATION
  Report Type: Spontaneous
  Country: US (occurrence: US)
  Receive Date: 20161209
  Receipt Date: 20161209
  Transmission Date: 20170207
  Serious: Yes (Disabling, Other)
  Sender: FDA-Public Use
  Company Number: None

PATIENT
  Age: 67 Year
  Sex: Female
  Weight: 90 kg

DRUGS (9)
  1. NABUMETONE. [Concomitant]
     Active Substance: NABUMETONE
  2. TRIAMCINOLONE [Concomitant]
     Active Substance: TRIAMCINOLONE
  3. FISH OIL [Concomitant]
     Active Substance: FISH OIL
  4. VITAMIN D [Concomitant]
     Active Substance: CHOLECALCIFEROL
  5. YOUR SKIN BUT BETTER CC COLOR CORRECTING FULL COVERAGE SPF 50 FAIR [Suspect]
     Active Substance: TITANIUM DIOXIDE\ZINC OXIDE
     Indication: PRODUCT USED FOR UNKNOWN INDICATION
     Dates: start: 20161204, end: 20161204
  6. RESTASIS [Concomitant]
     Active Substance: CYCLOSPORINE
  7. METHYLPREDNISOLONE. [Concomitant]
     Active Substance: METHYLPREDNISOLONE
  8. TYLENOL ARTHRITIS PAIN [Concomitant]
     Active Substance: ACETAMINOPHEN
  9. MAGNESIUM [Concomitant]
     Active Substance: MAGNESIUM

REACTIONS (5)
  - Herpes zoster [None]
  - Papule [None]
  - Dermatitis contact [None]
  - Swelling face [None]
  - Facial pain [None]

NARRATIVE: CASE EVENT DATE: 20161205
